FAERS Safety Report 8045711-4 (Version None)
Quarter: 2012Q1

REPORT INFORMATION
  Report Type: 
  Country: None (occurrence: None)
  Receive Date: 20120113
  Receipt Date: 20120110
  Transmission Date: 20120608
  Serious: Yes (Death, Hospitalization)
  Sender: FDA-Public Use
  Company Number: JP-PFIZER INC-2011281070

PATIENT
  Age: 91 Year
  Sex: Female

DRUGS (3)
  1. CELECOXIB [Suspect]
     Dosage: UNK
     Route: 048
  2. ASPIRIN [Concomitant]
  3. WARFARIN SODIUM [Suspect]
     Dosage: UNK

REACTIONS (2)
  - GASTROINTESTINAL HAEMORRHAGE [None]
  - SHOCK HAEMORRHAGIC [None]
